FAERS Safety Report 6466193-X (Version None)
Quarter: 2009Q4

REPORT INFORMATION
  Report Type: 
  Country: None (occurrence: None)
  Receive Date: 20091202
  Receipt Date: 20091123
  Transmission Date: 20100525
  Serious: Yes (Other)
  Sender: FDA-Public Use
  Company Number: GB-ROCHE-614431

PATIENT
  Age: 32 Year
  Sex: Female

DRUGS (5)
  1. ISOTRETINOIN [Suspect]
     Indication: ACNE
     Route: 065
  2. ISOTRETINOIN [Suspect]
     Dosage: DOSE REDUSED
     Route: 065
     Dates: start: 20050704, end: 20090202
  3. DIANETTE [Concomitant]
  4. DUAC [Concomitant]
     Dosage: DRUG NAME REPORTED AS DUAC GEL
  5. MINOCYCLINE HCL [Concomitant]

REACTIONS (2)
  - DRUG EXPOSURE DURING PREGNANCY [None]
  - NO ADVERSE EVENT [None]
